FAERS Safety Report 18335802 (Version 5)
Quarter: 2021Q1

REPORT INFORMATION
  Report Type: Spontaneous
  Country: US (occurrence: US)
  Receive Date: 20201001
  Receipt Date: 20210203
  Transmission Date: 20210419
  Serious: Yes (Other)
  Sender: FDA-Public Use
  Company Number: US-PFIZER INC-2020348232

PATIENT
  Age: 69 Year
  Sex: Female

DRUGS (5)
  1. FEMARA [Concomitant]
     Active Substance: LETROZOLE
     Dosage: UNK
     Dates: start: 202004
  2. IBRANCE [Suspect]
     Active Substance: PALBOCICLIB
     Dosage: 75 MG, CYCLIC (75 MG X 5 DAYS FOR 3 WEEKS, REST WEEK 4),
     Dates: start: 20200408
  3. IBRANCE [Suspect]
     Active Substance: PALBOCICLIB
     Dosage: 75 MG, CYCLIC (75 MG X 5 DAYS A WEEK X 21 DAYS OF 28 DAY CYCLE)
     Dates: start: 20210107
  4. LETROZOLE. [Concomitant]
     Active Substance: LETROZOLE
     Dosage: UNK
     Dates: start: 20210107
  5. IBRANCE [Suspect]
     Active Substance: PALBOCICLIB
     Indication: BREAST CANCER FEMALE
     Dosage: 75 MG, CYCLIC (DIRECTIONS SIG: 1 TAB DAILY X 5 DAYS FOR 3 WEEKS)

REACTIONS (9)
  - Back pain [Unknown]
  - Drug hypersensitivity [Unknown]
  - Product prescribing error [Unknown]
  - Product use issue [Unknown]
  - Neutropenia [Unknown]
  - Neoplasm progression [Unknown]
  - Pain [Unknown]
  - Off label use [Unknown]
  - Product dose omission issue [Unknown]
